FAERS Safety Report 9443453 (Version 1)
Quarter: 2013Q3

REPORT INFORMATION
  Report Type: Spontaneous
  Country: FR (occurrence: FR)
  Receive Date: 20130806
  Receipt Date: 20130806
  Transmission Date: 20140515
  Serious: Yes (Other)
  Sender: FDA-Public Use
  Company Number: PHHY2013FR083811

PATIENT
  Sex: Female

DRUGS (2)
  1. LEPONEX / CLOZARIL (CLOZAPINE) [Suspect]
     Indication: BIPOLAR DISORDER
     Dosage: 300 MG, QD
     Route: 048
  2. TERALITHE [Concomitant]
     Indication: BIPOLAR DISORDER
     Dosage: UNK UKN, UNK
     Route: 048

REACTIONS (1)
  - Breast cancer [Not Recovered/Not Resolved]
